FAERS Safety Report 9118074 (Version 1)
Quarter: 2013Q1

REPORT INFORMATION
  Report Type: Report from Study
  Country: US (occurrence: US)
  Receive Date: 20130129
  Receipt Date: 20130129
  Transmission Date: 20140127
  Serious: No
  Sender: FDA-Public Use
  Company Number: US-ABBOTT-12P-163-0939970-00

PATIENT
  Age: 74 Year
  Sex: Male

DRUGS (10)
  1. HUMIRA 40 MG/0.8 ML PEN [Suspect]
     Indication: ANKYLOSING SPONDYLITIS
     Route: 058
     Dates: start: 201103
  2. PRILOSEC [Concomitant]
     Indication: GASTROOESOPHAGEAL REFLUX DISEASE
     Dosage: DAILY
  3. ASA [Concomitant]
     Indication: PRODUCT USED FOR UNKNOWN INDICATION
     Dosage: 81MG DAILLY
  4. ALLOPURINOL [Concomitant]
     Indication: GOUT
     Dosage: 300MG DAILY
  5. METAXALONE [Concomitant]
     Indication: MUSCLE RELAXANT THERAPY
  6. SIMVASTATIN [Concomitant]
     Indication: BLOOD CHOLESTEROL INCREASED
     Dosage: 40MG DAILY
  7. METOPROLOL ER [Concomitant]
     Indication: HYPERTENSION
     Dosage: 50MG DAILY
  8. LIMBREL [Concomitant]
     Indication: ANKYLOSING SPONDYLITIS
     Dosage: 500MG DAILY
  9. LASIX [Concomitant]
     Indication: FLUID RETENTION
     Dosage: 40MG - 0.5 TAB DAILY
  10. POTASSIUM CHLORIDE [Concomitant]
     Indication: MINERAL SUPPLEMENTATION
     Dosage: 10MG DAILY

REACTIONS (4)
  - Nasopharyngitis [Recovering/Resolving]
  - Nasopharyngitis [Recovering/Resolving]
  - Nasopharyngitis [Recovering/Resolving]
  - Nasopharyngitis [Recovering/Resolving]
